FAERS Safety Report 13802223 (Version 4)
Quarter: 2018Q1

REPORT INFORMATION
  Report Type: Report from Study
  Country: US (occurrence: US)
  Receive Date: 20170727
  Receipt Date: 20180228
  Transmission Date: 20180508
  Serious: Yes (Hospitalization)
  Sender: FDA-Public Use
  Company Number: US-ACTELION-A-NJ2017-157331

PATIENT
  Age: 70 Year
  Sex: Female
  Weight: 89.34 kg

DRUGS (2)
  1. OPSUMIT [Suspect]
     Active Substance: MACITENTAN
     Indication: PULMONARY ARTERIAL HYPERTENSION
     Dosage: 10 MG, QD
     Route: 048
  2. UPTRAVI [Suspect]
     Active Substance: SELEXIPAG
     Indication: PULMONARY ARTERIAL HYPERTENSION
     Dosage: 800 MCG, BID
     Route: 048

REACTIONS (16)
  - Lung disorder [Unknown]
  - Fall [Unknown]
  - Dehydration [Unknown]
  - Seizure [Unknown]
  - Loss of consciousness [Unknown]
  - Cough [Unknown]
  - Musculoskeletal stiffness [Unknown]
  - Dizziness [Unknown]
  - Pneumonia [Unknown]
  - Dyspnoea [Unknown]
  - Cardiac arrest [Unknown]
  - Cardiac disorder [Unknown]
  - Weight increased [Unknown]
  - Carotid artery disease [Unknown]
  - Oedema [Unknown]
  - Syncope [Unknown]
